FAERS Safety Report 5135653-6 (Version None)
Quarter: 2006Q4

REPORT INFORMATION
  Report Type: 
  Country: None (occurrence: None)
  Receive Date: 20061020
  Receipt Date: 20061009
  Transmission Date: 20070319
  Serious: Yes (Hospitalization)
  Sender: FDA-Public Use
  Company Number: L06-USA-04237-01

PATIENT
  Age: 81 Year
  Sex: Female

DRUGS (6)
  1. ESCITALOPRAM [Suspect]
     Indication: DEPRESSION
     Dosage: 10 MG
  2. MIRTAZAPINE [Suspect]
  3. HYDROCHLOTHIAZIDE [Suspect]
  4. RAMIPRIL [Concomitant]
  5. DONEPEZIL HCL [Concomitant]
  6. ALENDRONIC ACID [Concomitant]

REACTIONS (5)
  - ASTHENIA [None]
  - FALL [None]
  - FANCONI SYNDROME [None]
  - INAPPROPRIATE ANTIDIURETIC HORMONE SECRETION [None]
  - RENAL TUBULAR DISORDER [None]
